FAERS Safety Report 7545392-X (Version None)
Quarter: 2011Q2

REPORT INFORMATION
  Report Type: 
  Country: None (occurrence: None)
  Receive Date: 20110607
  Receipt Date: 20110525
  Transmission Date: 20111010
  Serious: Yes (Other)
  Sender: FDA-Public Use
  Company Number: 2523595-2011-00017

PATIENT
  Age: 54 Year
  Sex: Female
  Weight: 67.5 kg

DRUGS (17)
  1. CLINDAMYCIN LOTION [Concomitant]
  2. BENADRYL [Concomitant]
  3. FLUOCINOLONE ACETONIDE [Concomitant]
  4. ZANTAC [Concomitant]
  5. CARMOL [Concomitant]
  6. UVADEX [Suspect]
     Indication: PHOTOPHERESIS
     Dosage: 4.2 ML
     Dates: start: 20110503, end: 20110524
  7. ALBUTEROL SULFATE AUTOHALER [Concomitant]
  8. HYDROCODONE BITARTRATE/HOMATROPINE METHYBROMIDE [Concomitant]
  9. BENZONATATE [Concomitant]
  10. CHLORAHEXADINE GLUCONATE [Concomitant]
  11. BONIVA [Concomitant]
  12. ELIDEL [Concomitant]
  13. CORDRAN [Concomitant]
  14. KENALOG [Concomitant]
  15. SARNA LOTION [Concomitant]
  16. HYDROXYZINE [Concomitant]
  17. NASONEX [Concomitant]

REACTIONS (6)
  - ERYTHEMA [None]
  - SWELLING FACE [None]
  - RASH [None]
  - DISCOMFORT [None]
  - URTICARIA [None]
  - PRURITUS [None]
